FAERS Safety Report 4653182-0 (Version None)
Quarter: 2005Q2

REPORT INFORMATION
  Report Type: 
  Country: None (occurrence: None)
  Receive Date: 20050503
  Receipt Date: 20050420
  Transmission Date: 20051028
  Serious: Yes (Other)
  Sender: FDA-Public Use
  Company Number: 2005063329

PATIENT
  Age: 53 Year
  Sex: Female

DRUGS (3)
  1. NEURONTIN [Suspect]
     Indication: MOOD SWINGS
     Dosage: 350 MG (1 D)
  2. GABAPENTIN [Suspect]
     Indication: MOOD SWINGS
     Dates: start: 20050301, end: 20050101
  3. LEVOTHYROXINE SODIUM [Suspect]
     Indication: THYROIDECTOMY

REACTIONS (5)
  - CRYING [None]
  - DEPRESSION [None]
  - DIZZINESS [None]
  - PHARMACEUTICAL PRODUCT COMPLAINT [None]
  - THYROIDECTOMY [None]
